FAERS Safety Report 25223357 (Version 1)
Quarter: 2025Q2

REPORT INFORMATION
  Report Type: Spontaneous
  Country: US (occurrence: US)
  Receive Date: 20250422
  Receipt Date: 20250422
  Transmission Date: 20250717
  Serious: No
  Sender: ROCHE
  Company Number: US-ROCHE-10000262577

PATIENT
  Age: 68 Year
  Sex: Male
  Weight: 106.59 kg

DRUGS (5)
  1. ACTEMRA [Suspect]
     Active Substance: TOCILIZUMAB
     Indication: Giant cell arteritis
     Route: 042
     Dates: start: 20241029, end: 20250416
  2. Benadryl 12.5mg IV [Concomitant]
     Route: 042
  3. normal saline drip [Concomitant]
     Route: 042
  4. acetaminophen 1000mg [Concomitant]
     Route: 048
  5. solumedrol 40mg IV [Concomitant]
     Route: 042

REACTIONS (7)
  - Cough [Unknown]
  - Erythema [Unknown]
  - Ocular hyperaemia [Unknown]
  - Abdominal pain upper [Unknown]
  - Chest discomfort [Unknown]
  - Chills [Recovered/Resolved]
  - Oxygen saturation decreased [Recovered/Resolved]

NARRATIVE: CASE EVENT DATE: 20250416
